FAERS Safety Report 11243476 (Version 1)
Quarter: 2015Q3

REPORT INFORMATION
  Report Type: Spontaneous
  Country: US (occurrence: None)
  Receive Date: 20150702
  Receipt Date: 20150702
  Transmission Date: 20151125
  Serious: Yes (Life-Threatening, Hospitalization)
  Sender: FDA-Public Use
  Company Number: None

PATIENT
  Age: 84 Year
  Sex: Male
  Weight: 91.2 kg

DRUGS (2)
  1. ACETAMINOPHEN/HYDROCODONE [Suspect]
     Active Substance: ACETAMINOPHEN\HYDROCODONE
     Route: 048
     Dates: start: 20150607, end: 20150609
  2. TIZANIDINE. [Suspect]
     Active Substance: TIZANIDINE
     Route: 048
     Dates: start: 20150607, end: 20150609

REACTIONS (3)
  - Hypotension [None]
  - Somnolence [None]
  - Bradycardia [None]

NARRATIVE: CASE EVENT DATE: 20150619
